FAERS Safety Report 6369852-2 (Version None)
Quarter: 2009Q3

REPORT INFORMATION
  Report Type: 
  Country: None (occurrence: None)
  Receive Date: 20090923
  Receipt Date: 20070516
  Transmission Date: 20100115
  Serious: Yes (Other)
  Sender: FDA-Public Use
  Company Number: US-ASTRAZENECA-2006UW11023

PATIENT
  Age: 48 Year
  Sex: Female
  Weight: 68.9 kg

DRUGS (4)
  1. SEROQUEL [Suspect]
     Indication: MENTAL DISORDER
     Dosage: 100 TO 300 MG
     Route: 048
     Dates: start: 20030102
  2. SEROQUEL [Suspect]
     Route: 048
  3. FLUOXETINE [Concomitant]
     Dosage: 10, 20 MG
     Dates: start: 20031024
  4. ZOLOFT [Concomitant]
     Dates: start: 20031001

REACTIONS (4)
  - DIABETES MELLITUS [None]
  - DIABETIC COMA [None]
  - DIABETIC KETOACIDOSIS [None]
  - PANCREATITIS [None]
